FAERS Safety Report 11947837 (Version 2)
Quarter: 2016Q1

REPORT INFORMATION
  Report Type: Spontaneous
  Country: US (occurrence: US)
  Receive Date: 20160125
  Receipt Date: 20160125
  Transmission Date: 20160526
  Serious: Yes (Death, Other)
  Sender: FDA-Public Use
  Company Number: US-MYLANLABS-2016M1002241

PATIENT

DRUGS (1)
  1. FONDAPARINUX [Suspect]
     Active Substance: FONDAPARINUX
     Indication: PRODUCT USED FOR UNKNOWN INDICATION
     Dosage: UNK
     Route: 048

REACTIONS (7)
  - Arterial haemorrhage [Unknown]
  - Death [Fatal]
  - Haemorrhage [Unknown]
  - Haemoptysis [Unknown]
  - Epistaxis [Unknown]
  - Respiratory distress [Unknown]
  - Haematemesis [Unknown]
